FAERS Safety Report 5291781-6 (Version None)
Quarter: 2007Q2

REPORT INFORMATION
  Report Type: 
  Country: None (occurrence: None)
  Receive Date: 20070406
  Receipt Date: 20070406
  Transmission Date: 20071010
  Serious: Yes (Hospitalization)
  Sender: FDA-Public Use
  Company Number: None

PATIENT
  Age: 47 Year
  Sex: Male

DRUGS (11)
  1. IMITREX [Suspect]
     Indication: MIGRAINE
     Dosage: 50MG  PO  STAT
     Route: 048
  2. ALTACE [Concomitant]
  3. CELEBREX [Concomitant]
  4. COLCHICINE [Concomitant]
  5. PROZAC [Concomitant]
  6. VISTARIL [Concomitant]
  7. LAMICTAL [Concomitant]
  8. TOPAMAX [Concomitant]
  9. ZOVIRAX [Concomitant]
  10. GLUCOPHAGE [Concomitant]
  11. LIDOCAINE [Concomitant]

REACTIONS (2)
  - LOCAL SWELLING [None]
  - RASH [None]
